FAERS Safety Report 7857431-7 (Version None)
Quarter: 2011Q4

REPORT INFORMATION
  Report Type: 
  Country: None (occurrence: None)
  Receive Date: 20111027
  Receipt Date: 20111012
  Transmission Date: 20120403
  Serious: Yes (Death, Other)
  Sender: FDA-Public Use
  Company Number: JP-RANBAXY-2011RR-47646

PATIENT
  Age: 62 Year
  Sex: Female

DRUGS (8)
  1. PREDNISOLONE [Suspect]
     Indication: GOODPASTURE'S SYNDROME
     Dosage: 30 MG/DAY
     Route: 048
  2. PREDNISOLONE [Suspect]
     Dosage: 45 MG/DAY
     Route: 048
  3. GANCICLOVIR [Suspect]
     Indication: PRODUCT USED FOR UNKNOWN INDICATION
     Dosage: UNK
     Route: 065
  4. PREDNISOLONE [Suspect]
     Dosage: 30 MG/DAY
     Route: 048
  5. PREDNISOLONE [Suspect]
     Dosage: 60 MG, UNK
     Route: 048
  6. PREDNISOLONE [Suspect]
     Dosage: 20 MG/DAY
     Route: 048
  7. PREDNISOLONE [Suspect]
     Dosage: 17.5 MG/DAY
     Route: 048
  8. METHYLPREDNISOLONE [Suspect]
     Indication: GLOMERULONEPHRITIS RAPIDLY PROGRESSIVE
     Dosage: 0.5 G/DAY
     Route: 065

REACTIONS (9)
  - AGRANULOCYTOSIS [None]
  - PNEUMOCYSTIS JIROVECI PNEUMONIA [None]
  - PSEUDOMONAS INFECTION [None]
  - ACARODERMATITIS [None]
  - STAPHYLOCOCCAL INFECTION [None]
  - CYTOMEGALOVIRUS DUODENITIS [None]
  - DEVICE RELATED INFECTION [None]
  - ASPERGILLOSIS [None]
  - BACTEROIDES INFECTION [None]
